FAERS Safety Report 5726976-8 (Version None)
Quarter: 2008Q2

REPORT INFORMATION
  Report Type: 
  Country: None (occurrence: None)
  Receive Date: 20080501
  Receipt Date: 20070711
  Transmission Date: 20081010
  Serious: Yes (Other)
  Sender: FDA-Public Use
  Company Number: PHEH2007US09842

PATIENT
  Sex: Female

DRUGS (1)
  1. DIOVAN HCT [Suspect]
     Indication: HYPERTENSION
     Dosage: 320MG VAL/25MG HCT
     Dates: start: 20070710

REACTIONS (2)
  - HYPERTENSION [None]
  - THERAPY RESPONDER [None]
